FAERS Safety Report 8304555-6 (Version None)
Quarter: 2012Q2

REPORT INFORMATION
  Report Type: 
  Country: None (occurrence: None)
  Receive Date: 20120423
  Receipt Date: 20120412
  Transmission Date: 20120825
  Serious: Yes (Hospitalization)
  Sender: FDA-Public Use
  Company Number: JP-GLAXOSMITHKLINE-B0506920A

PATIENT
  Sex: Male
  Weight: 54 kg

DRUGS (18)
  1. REQUIP [Suspect]
     Dosage: 6MG PER DAY
     Route: 048
     Dates: start: 20070821, end: 20070827
  2. ESTAZOLAM [Concomitant]
     Indication: PROPHYLAXIS
     Route: 048
  3. ALMARL [Concomitant]
     Indication: ATRIAL FIBRILLATION
     Route: 048
  4. PROSTAGLANDIN E2 [Concomitant]
     Indication: DERMATITIS
     Route: 061
     Dates: start: 20071221
  5. PURSENNID [Concomitant]
     Indication: CONSTIPATION
     Route: 048
     Dates: start: 20070903
  6. TAGAMET [Concomitant]
     Indication: GASTRITIS PROPHYLAXIS
     Route: 048
  7. REQUIP [Suspect]
     Dosage: 4MG PER DAY
     Route: 048
     Dates: start: 20070814, end: 20070820
  8. REQUIP [Suspect]
     Dosage: 8MG PER DAY
     Route: 048
     Dates: start: 20070828, end: 20070903
  9. REQUIP [Suspect]
     Dosage: 12MG PER DAY
     Route: 048
     Dates: start: 20071002, end: 20080205
  10. GLORIAMIN [Concomitant]
     Indication: GASTRITIS PROPHYLAXIS
     Route: 048
  11. BUFEXAMAC [Concomitant]
     Indication: DERMATITIS
     Route: 061
     Dates: start: 20071120, end: 20071221
  12. METHADERM [Concomitant]
     Indication: DERMATITIS
     Route: 061
     Dates: start: 20071225
  13. REQUIP [Suspect]
     Dosage: 10MG PER DAY
     Route: 048
     Dates: start: 20070904, end: 20071001
  14. REQUIP [Suspect]
     Indication: PARKINSON'S DISEASE
     Dosage: 2MG PER DAY
     Route: 048
     Dates: start: 20070807, end: 20070813
  15. DIGOXIN [Concomitant]
     Indication: ATRIAL FIBRILLATION
     Route: 048
  16. WARFARIN SODIUM [Concomitant]
     Indication: ATRIAL FIBRILLATION
     Route: 048
  17. JUVELA N [Concomitant]
     Indication: DERMATITIS
     Route: 048
     Dates: start: 20071225
  18. HIRUDOID [Concomitant]
     Indication: DERMATITIS
     Route: 061
     Dates: start: 20071225

REACTIONS (1)
  - SMALL INTESTINE CARCINOMA [None]
